FAERS Safety Report 18246206 (Version 1)
Quarter: 2020Q3

REPORT INFORMATION
  Report Type: Spontaneous
  Country: US (occurrence: US)
  Receive Date: 20200909
  Receipt Date: 20200909
  Transmission Date: 20201103
  Serious: Yes (Hospitalization)
  Sender: FDA-Public Use
  Company Number: None

PATIENT
  Sex: Female
  Weight: 91.1 kg

DRUGS (3)
  1. TAXOL [Suspect]
     Active Substance: PACLITAXEL
     Dates: end: 20200901
  2. PERTUZUMAB. [Suspect]
     Active Substance: PERTUZUMAB
     Dates: end: 20200901
  3. HERCEPTIN [Suspect]
     Active Substance: TRASTUZUMAB
     Dates: end: 20200901

REACTIONS (6)
  - Dysphagia [None]
  - Swelling [None]
  - Neck pain [None]
  - Pain in extremity [None]
  - Jugular vein thrombosis [None]
  - Pharyngeal swelling [None]

NARRATIVE: CASE EVENT DATE: 20200906
